FAERS Safety Report 21705346 (Version 2)
Quarter: 2022Q4

REPORT INFORMATION
  Report Type: Spontaneous
  Country: CN (occurrence: CN)
  Receive Date: 20221209
  Receipt Date: 20221215
  Transmission Date: 20230113
  Serious: Yes (Other)
  Sender: FDA-Public Use
  Company Number: CN-SA-2022SA497258

PATIENT
  Age: 44 Year
  Sex: Male

DRUGS (19)
  1. ENOXAPARIN SODIUM [Suspect]
     Active Substance: ENOXAPARIN SODIUM
     Indication: Thrombosis prophylaxis
     Dosage: 0.4 ML, QD
  2. OXALIPLATIN [Suspect]
     Active Substance: OXALIPLATIN
     Indication: Ductal adenocarcinoma of pancreas
     Dosage: 68 MG/M2, Q3W
  3. OXALIPLATIN [Suspect]
     Active Substance: OXALIPLATIN
     Indication: Metastases to liver
  4. GEMCITABINE [Concomitant]
     Active Substance: GEMCITABINE
     Indication: Ductal adenocarcinoma of pancreas
     Dosage: 1000 MG/M2 (TREATMENT CIRCLE FOR 21DAYS)
  5. GEMCITABINE [Concomitant]
     Active Substance: GEMCITABINE
     Indication: Metastases to liver
  6. PACLITAXEL [Concomitant]
     Active Substance: PACLITAXEL
     Indication: Ductal adenocarcinoma of pancreas
     Dosage: 125 MG/M2 (ON DAYS 1 AND 8 (THE PATIENT?S BODY SURFACE AREA IS 2.07 M2 )) (TREATMENT CIRCLE FOR 21DA
  7. PACLITAXEL [Concomitant]
     Active Substance: PACLITAXEL
     Indication: Metastases to liver
  8. TISLELIZUMAB [Concomitant]
     Active Substance: TISLELIZUMAB
     Indication: Ductal adenocarcinoma of pancreas
     Dosage: 200 MG (TREATMENT CIRCLE FOR 21DAYS)
     Route: 042
  9. TISLELIZUMAB [Concomitant]
     Active Substance: TISLELIZUMAB
     Indication: Metastases to liver
  10. CATEQUENTINIB [Concomitant]
     Active Substance: CATEQUENTINIB
     Indication: Ductal adenocarcinoma of pancreas
     Dosage: 12 MG FOR 2 WEEKS (TREATMENT CIRCLE FOR 21DAYS)
     Route: 048
  11. CATEQUENTINIB [Concomitant]
     Active Substance: CATEQUENTINIB
     Indication: Metastases to liver
  12. IRINOTECAN [Concomitant]
     Active Substance: IRINOTECAN
     Indication: Ductal adenocarcinoma of pancreas
     Dosage: 135 MG/M2, Q3W
  13. IRINOTECAN [Concomitant]
     Active Substance: IRINOTECAN
     Indication: Metastases to liver
  14. LEUCOVORIN [Concomitant]
     Active Substance: LEUCOVORIN
     Indication: Ductal adenocarcinoma of pancreas
     Dosage: 400 MG/M2, Q3W
  15. LEUCOVORIN [Concomitant]
     Active Substance: LEUCOVORIN
     Indication: Metastases to liver
  16. FLUOROURACIL SODIUM [Concomitant]
     Active Substance: FLUOROURACIL SODIUM
     Indication: Ductal adenocarcinoma of pancreas
     Dosage: 2400 MG/M2, Q3W
  17. FLUOROURACIL SODIUM [Concomitant]
     Active Substance: FLUOROURACIL SODIUM
     Indication: Metastases to liver
  18. PENPULIMAB [Concomitant]
     Active Substance: PENPULIMAB
     Indication: Ductal adenocarcinoma of pancreas
     Dosage: 200 MG
  19. PENPULIMAB [Concomitant]
     Active Substance: PENPULIMAB
     Indication: Metastases to liver

REACTIONS (3)
  - Leukopenia [Recovered/Resolved]
  - Myelosuppression [Recovered/Resolved]
  - Anaemia [Recovered/Resolved]
